FAERS Safety Report 6701350-6 (Version None)
Quarter: 2010Q2

REPORT INFORMATION
  Report Type: 
  Country: None (occurrence: None)
  Receive Date: 20100429
  Receipt Date: 20100428
  Transmission Date: 20101027
  Serious: Yes (Other)
  Sender: FDA-Public Use
  Company Number: US-RB-007988-10

PATIENT
  Age: 61 Year
  Sex: Female

DRUGS (2)
  1. MUCINEX DM [Suspect]
     Dosage: ITAKEN ONE TABLET EVERY 12 HOURS OR ONE TABLET DAY FOR THE LAST 2 WEEKS
     Route: 048
     Dates: start: 20100414
  2. MUCINEX DM [Suspect]
     Dosage: TAKEN ONE TABLET EVERY 12 HOURS OR ONE TABLET A DAY FOR THE LAST 2 WEEKS
     Route: 048
     Dates: start: 20100414

REACTIONS (2)
  - BLOOD PRESSURE INCREASED [None]
  - INCORRECT DRUG ADMINISTRATION DURATION [None]
